FAERS Safety Report 13373512 (Version 1)
Quarter: 2017Q1

REPORT INFORMATION
  Report Type: Spontaneous
  Country: US (occurrence: US)
  Receive Date: 20170324
  Receipt Date: 20170324
  Transmission Date: 20170429
  Serious: Yes (Hospitalization)
  Sender: FDA-Public Use
  Company Number: None

PATIENT
  Age: 61 Year
  Sex: Female

DRUGS (11)
  1. IMATINIB MES 400MG [Suspect]
     Active Substance: IMATINIB MESYLATE
     Indication: GASTROINTESTINAL STROMAL TUMOUR
     Route: 048
     Dates: start: 20170203
  2. DICLOFEN [Concomitant]
     Active Substance: DICLOFENAC SODIUM
  3. SYNTHROID [Concomitant]
     Active Substance: LEVOTHYROXINE SODIUM
  4. ALLOPURINOL. [Concomitant]
     Active Substance: ALLOPURINOL
  5. CYCLOBENZAPR [Concomitant]
  6. FERROUS SULF [Concomitant]
  7. SIMVASTATIN. [Concomitant]
     Active Substance: SIMVASTATIN
  8. VITAMIN D [Concomitant]
     Active Substance: CHOLECALCIFEROL
  9. VITAMIN B12 [Concomitant]
     Active Substance: CYANOCOBALAMIN
  10. ZOLOFT [Concomitant]
     Active Substance: SERTRALINE HYDROCHLORIDE
  11. TRIAM/HCTZ [Concomitant]

REACTIONS (2)
  - White blood cell count decreased [None]
  - Pyrexia [None]

NARRATIVE: CASE EVENT DATE: 20170316
